FAERS Safety Report 16855693 (Version 2)
Quarter: 2019Q4

REPORT INFORMATION
  Report Type: Report from Study
  Country: US (occurrence: US)
  Receive Date: 20190926
  Receipt Date: 20191009
  Transmission Date: 20200122
  Serious: Yes (Hospitalization, Other)
  Sender: FDA-Public Use
  Company Number: US-JNJFOC-20190901723

PATIENT
  Age: 73 Year
  Sex: Male

DRUGS (8)
  1. IMBRUVICA [Suspect]
     Active Substance: IBRUTINIB
     Indication: MANTLE CELL LYMPHOMA
     Route: 048
     Dates: start: 20161124
  2. IMBRUVICA [Suspect]
     Active Substance: IBRUTINIB
     Route: 048
     Dates: start: 20190213
  3. ELIQUIS [Concomitant]
     Active Substance: APIXABAN
  4. IMBRUVICA [Suspect]
     Active Substance: IBRUTINIB
     Route: 048
     Dates: start: 20160824
  5. LEVOTHYROXINE                      /00068002/ [Concomitant]
     Active Substance: LEVOTHYROXINE
  6. IVIGLOB EX [Concomitant]
     Active Substance: HUMAN IMMUNOGLOBULIN G
  7. METOPROLOL. [Concomitant]
     Active Substance: METOPROLOL
  8. ALLOPURINOL                        /00003302/ [Concomitant]
     Active Substance: ALLOPURINOL

REACTIONS (6)
  - Hypersensitivity [Unknown]
  - Atrial fibrillation [Recovered/Resolved]
  - Hypotension [Unknown]
  - Limb injury [Unknown]
  - Pneumonia [Recovered/Resolved]
  - Sepsis [Recovered/Resolved]

NARRATIVE: CASE EVENT DATE: 2019
